FAERS Safety Report 19029027 (Version 1)
Quarter: 2021Q1

REPORT INFORMATION
  Report Type: Spontaneous
  Country: AU (occurrence: AU)
  Receive Date: 20210319
  Receipt Date: 20210319
  Transmission Date: 20210420
  Serious: Yes (Other)
  Sender: FDA-Public Use
  Company Number: AU-DRREDDYS-AUS/AUS/21/0133081

PATIENT
  Age: 80 Year
  Sex: Male

DRUGS (2)
  1. IMATINIB?DRLA [Suspect]
     Active Substance: IMATINIB
     Indication: PRODUCT USED FOR UNKNOWN INDICATION
  2. DASATINIB. [Suspect]
     Active Substance: DASATINIB
     Indication: PRODUCT USED FOR UNKNOWN INDICATION

REACTIONS (5)
  - Cardiac failure [Unknown]
  - Pleural effusion [Unknown]
  - Mobility decreased [Unknown]
  - Diarrhoea [Unknown]
  - Dyspnoea [Unknown]
